FAERS Safety Report 10420312 (Version 1)
Quarter: 2014Q3

REPORT INFORMATION
  Report Type: Spontaneous
  Country: US (occurrence: None)
  Receive Date: 20140701
  Receipt Date: 20140701
  Transmission Date: 20150326
  Serious: No
  Sender: FDA-Public Use
  Company Number: 1000066123

PATIENT
  Age: 77 Year
  Sex: Female

DRUGS (11)
  1. VITAMIN B12 (VIATMIN B12) (VITAMIN B12) [Concomitant]
  2. OXYGEN (OXYGEN) (OXYGEN) [Concomitant]
  3. METOPROLOL ER (METOPROLOL ER) (METOPROLOL ER) [Concomitant]
  4. CLONIDINE (CLONIDINE) CLONIDINE [Concomitant]
  5. VITAMIN D3 (COLECALCIFEROL) (COLECALCIFEROL) [Concomitant]
  6. LINZESS [Suspect]
     Active Substance: LINACLOTIDE
     Indication: CONSTIPATION
     Dosage: 145 MCG (145 MCG, 1 IN 1 D), ORAL
     Route: 048
     Dates: start: 201403, end: 201403
  7. AMLODIPINE [Concomitant]
     Active Substance: AMLODIPINE BESYLATE
  8. PEPCID (FAMOTIDINE) (FAMOTIDINE) [Concomitant]
  9. AREDS (AREDS) (AREDS) [Concomitant]
  10. GLUCOPHAGE (METFORMIN HYDROCHLORIDE) (METFORMIN HYDROCHLORIDE)? [Concomitant]
  11. MICARDIS (TELMISARTAN) (TELMISARTAN) [Concomitant]

REACTIONS (5)
  - Productive cough [None]
  - Abdominal pain upper [None]
  - Upper-airway cough syndrome [None]
  - Decreased appetite [None]
  - Nausea [None]

NARRATIVE: CASE EVENT DATE: 201403
